FAERS Safety Report 23465616 (Version 1)
Quarter: 2024Q1

REPORT INFORMATION
  Report Type: Spontaneous
  Country: GB (occurrence: GB)
  Receive Date: 20240201
  Receipt Date: 20240201
  Transmission Date: 20240409
  Serious: Yes (Disabling, Other)
  Sender: FDA-Public Use
  Company Number: None

PATIENT
  Sex: Female

DRUGS (1)
  1. MIRENA [Suspect]
     Active Substance: LEVONORGESTREL
     Indication: Contraception
     Dosage: 20?G/DAY
     Route: 015
     Dates: start: 20221010, end: 20240114

REACTIONS (8)
  - Anxiety [Recovering/Resolving]
  - Paranoia [Recovering/Resolving]
  - Depressed mood [Recovering/Resolving]
  - Weight increased [Recovering/Resolving]
  - Blunted affect [None]
  - Suicidal ideation [None]
  - Anger [None]
  - Aggression [None]

NARRATIVE: CASE EVENT DATE: 20221010
